FAERS Safety Report 6155125-X (Version None)
Quarter: 2009Q2

REPORT INFORMATION
  Report Type: 
  Country: None (occurrence: None)
  Receive Date: 20090415
  Receipt Date: 20080520
  Transmission Date: 20091009
  Serious: Yes (Other)
  Sender: FDA-Public Use
  Company Number: US-ASTRAZENECA-2008UW04652

PATIENT
  Age: 35 Year
  Sex: Female
  Weight: 97.1 kg

DRUGS (21)
  1. SEROQUEL [Suspect]
     Indication: ANXIETY
     Route: 048
     Dates: start: 20051103, end: 20070709
  2. SEROQUEL [Suspect]
     Indication: DEPRESSION
     Route: 048
     Dates: start: 20051103, end: 20070709
  3. SEROQUEL [Suspect]
     Indication: BIPOLAR DISORDER
     Route: 048
     Dates: start: 20051103, end: 20070709
  4. SEROQUEL [Suspect]
     Dosage: 100 TO 600 MG
     Route: 048
  5. SEROQUEL [Suspect]
     Dosage: 100 TO 600 MG
     Route: 048
  6. SEROQUEL [Suspect]
     Dosage: 100 TO 600 MG
     Route: 048
  7. ATENOLOL [Concomitant]
  8. EFFEXOR [Concomitant]
  9. GEODON [Concomitant]
  10. KLONOPIN [Concomitant]
  11. NEURONTIN [Concomitant]
  12. TRAZODONE HCL [Concomitant]
  13. LANTUS [Concomitant]
  14. TAMIFLU [Concomitant]
  15. HUMALOG [Concomitant]
  16. ZANAFLEX [Concomitant]
  17. SYNTHROID [Concomitant]
  18. METOPROLOL TARTRATE [Concomitant]
  19. LISINOPRIL [Concomitant]
  20. DOXAZOSIN MESYLATE [Concomitant]
  21. ARTANE [Concomitant]

REACTIONS (21)
  - ALOPECIA [None]
  - BACK PAIN [None]
  - DIABETES MELLITUS [None]
  - DIABETES MELLITUS INADEQUATE CONTROL [None]
  - DIABETIC KETOACIDOSIS [None]
  - DIZZINESS [None]
  - DYSARTHRIA [None]
  - ESSENTIAL HYPERTENSION [None]
  - HYPERCALCAEMIA [None]
  - HYPERCHOLESTEROLAEMIA [None]
  - HYPERLIPIDAEMIA [None]
  - INTERVERTEBRAL DISC PROTRUSION [None]
  - MUSCLE SPASMS [None]
  - MUSCULOSKELETAL PAIN [None]
  - MYOFASCIAL PAIN SYNDROME [None]
  - OEDEMA [None]
  - PAIN IN EXTREMITY [None]
  - PANIC ATTACK [None]
  - TACHYCARDIA [None]
  - TARDIVE DYSKINESIA [None]
  - TYPE 1 DIABETES MELLITUS [None]
